FAERS Safety Report 7382038-8 (Version None)
Quarter: 2011Q1

REPORT INFORMATION
  Report Type: 
  Country: None (occurrence: None)
  Receive Date: 20110329
  Receipt Date: 20110302
  Transmission Date: 20110831
  Serious: No
  Sender: FDA-Public Use
  Company Number: US-B.I. PHARMACEUTICALS,INC./RIDGEFIELD-2011-BP-00313BP

PATIENT
  Age: 74 Year
  Sex: Male

DRUGS (19)
  1. VITAMIN B [Concomitant]
  2. VITAMIN B-12 [Concomitant]
  3. PRADAXA [Suspect]
     Indication: ATRIAL FIBRILLATION
     Dosage: 300 MG
     Route: 048
     Dates: start: 20101212
  4. ALLOPURINOL [Concomitant]
     Dosage: 300 MG
  5. PRADAXA [Suspect]
     Indication: HYPERTENSION
  6. FLUTICASONE PROPIONATE [Concomitant]
  7. FISH OIL [Concomitant]
     Indication: PROPHYLAXIS
     Dosage: 200 MG
  8. PRADAXA [Suspect]
     Indication: STENT PLACEMENT
  9. LEVAMIN [Concomitant]
     Indication: DIABETES MELLITUS
  10. PRADAXA [Suspect]
     Indication: DIABETES MELLITUS
  11. ASPIRIN [Concomitant]
     Indication: PROPHYLAXIS
  12. GINSENG [Concomitant]
  13. MIRAPEX [Suspect]
     Indication: RESTLESS LEGS SYNDROME
     Route: 048
     Dates: start: 20030101
  14. ZINC [Concomitant]
     Indication: HYPERTENSION
  15. QUINAPRIL [Concomitant]
     Indication: HYPERTENSION
     Dosage: 20 MG
  16. PRAVACHOL [Concomitant]
     Indication: BLOOD CHOLESTEROL INCREASED
     Dosage: 140 MG
  17. METFORMIN HCL [Concomitant]
     Indication: DIABETES MELLITUS
     Dosage: 2000 MG
  18. MULTI-VITAMIN [Concomitant]
     Indication: PROPHYLAXIS
  19. FLAX SEED OIL [Concomitant]
     Indication: PROPHYLAXIS
     Dosage: 3000 MG

REACTIONS (6)
  - MEMORY IMPAIRMENT [None]
  - MELAENA [None]
  - BLOOD URINE PRESENT [None]
  - FLATULENCE [None]
  - ABDOMINAL DISCOMFORT [None]
  - ATRIAL FIBRILLATION [None]
